FAERS Safety Report 24357329 (Version 1)
Quarter: 2024Q3

REPORT INFORMATION
  Report Type: Spontaneous
  Country: US (occurrence: None)
  Receive Date: 20240923
  Receipt Date: 20240923
  Transmission Date: 20241016
  Serious: Yes (Life-Threatening)
  Sender: Public
  Company Number: None

PATIENT
  Age: 36 Year
  Sex: Female
  Weight: 128.02 kg

DRUGS (1)
  1. FERAHEME [Suspect]
     Active Substance: FERUMOXYTOL NON-STOICHIOMETRIC MAGNETITE

REACTIONS (11)
  - Anaphylactoid reaction [None]
  - Visual impairment [None]
  - Vertigo [None]
  - Inflammatory pain [None]
  - Hyperventilation [None]
  - Confusional state [None]
  - Blood pressure fluctuation [None]
  - Tinnitus [None]
  - Muscle spasms [None]
  - Burning sensation [None]
  - Abdominal discomfort [None]

NARRATIVE: CASE EVENT DATE: 20240923
